FAERS Safety Report 8864317 (Version 1)
Quarter: 2012Q4

REPORT INFORMATION
  Report Type: 
  Country: US (occurrence: US)
  Receive Date: 20121024
  Receipt Date: 20121024
  Transmission Date: 20130627
  Serious: No
  Sender: FDA-Public Use
  Company Number: US-AMGEN-USASP2011066603

PATIENT
  Age: 58 Year
  Sex: Female
  Weight: 69.84 kg

DRUGS (13)
  1. ENBREL [Suspect]
     Indication: RHEUMATOID ARTHRITIS
     Dosage: 50 mg, qwk
     Route: 058
  2. MEDROL [Concomitant]
     Dosage: 2 mg, UNK
     Route: 048
  3. METHOTREXATE [Concomitant]
     Dosage: 2.5 mg, UNK
     Route: 048
  4. SUMATRIPTAN [Concomitant]
     Dosage: 25 mg, UNK
     Route: 048
  5. CITALOPRAM [Concomitant]
     Dosage: 10 mg, UNK
     Route: 048
  6. LORAZEPAM [Concomitant]
     Dosage: 1 mg, UNK
     Route: 048
  7. ACTONEL [Concomitant]
     Dosage: 30 mg, UNK
     Route: 048
  8. PRILOSEC [Concomitant]
     Dosage: 20 mg, UNK
     Route: 048
  9. AMITRIPTYLIN [Concomitant]
     Dosage: 25 mg, UNK
     Route: 048
  10. HYDROCODONE/APAP [Concomitant]
     Route: 048
  11. VITAMIN D [Concomitant]
     Dosage: 1000 IU, UNK
     Route: 048
  12. FOLIC ACID [Concomitant]
     Route: 048
  13. LEVOXYL [Concomitant]
     Dosage: 88 mug, UNK
     Route: 048

REACTIONS (1)
  - Therapeutic response decreased [Unknown]
